FAERS Safety Report 19572573 (Version 1)
Quarter: 2021Q3

REPORT INFORMATION
  Report Type: Other
  Country: TH (occurrence: TH)
  Receive Date: 20210715
  Receipt Date: 20210715
  Transmission Date: 20211014
  Serious: Yes (Other)
  Sender: FDA-Public Use
  Company Number: TH-ROCHE-2871383

PATIENT
  Age: 59 Year
  Sex: Male

DRUGS (2)
  1. MEROPENEM. [Concomitant]
     Active Substance: MEROPENEM
  2. CAPECITABINE. [Suspect]
     Active Substance: CAPECITABINE
     Indication: COLON CANCER
     Dosage: FOR 8 CYCLES FOR 6 MONTHS.
     Route: 048

REACTIONS (2)
  - Acute myeloid leukaemia [Unknown]
  - Palmar-plantar erythrodysaesthesia syndrome [Unknown]
